FAERS Safety Report 6678206-0 (Version None)
Quarter: 2010Q2

REPORT INFORMATION
  Report Type: 
  Country: None (occurrence: None)
  Receive Date: 20100408
  Receipt Date: 20100408
  Transmission Date: 20101027
  Serious: No
  Sender: FDA-Public Use
  Company Number: None

PATIENT
  Sex: Female

DRUGS (2)
  1. SORAFENIB [Suspect]
     Dosage: SORAFENIB 400 MG DAILY PO
     Route: 048
     Dates: start: 20100128, end: 20100315
  2. ERLOTINIB [Suspect]
     Dosage: ERLOTINIB 150 MG DAILY PO
     Route: 048

REACTIONS (5)
  - ABDOMINAL PAIN [None]
  - HAEMATEMESIS [None]
  - MALIGNANT NEOPLASM PROGRESSION [None]
  - MENTAL STATUS CHANGES [None]
  - PANCREATIC CARCINOMA [None]
